FAERS Safety Report 22324956 (Version 1)
Quarter: 2023Q2

REPORT INFORMATION
  Report Type: Spontaneous
  Country: US (occurrence: US)
  Receive Date: 20230516
  Receipt Date: 20230516
  Transmission Date: 20230722
  Serious: Yes (Other)
  Sender: FDA-Public Use
  Company Number: US-AMNEAL PHARMACEUTICALS-2023-AMRX-00395

PATIENT
  Age: 52 Year
  Sex: Male

DRUGS (1)
  1. BACLOFEN [Suspect]
     Active Substance: BACLOFEN
     Indication: Product used for unknown indication
     Dosage: 50 MCG/DAY
     Route: 065
     Dates: start: 20230111

REACTIONS (3)
  - Meningitis [Recovered/Resolved]
  - Implant site infection [Recovered/Resolved]
  - Cerebrospinal fluid circulation disorder [Unknown]

NARRATIVE: CASE EVENT DATE: 20230101
